FAERS Safety Report 9352445 (Version 3)
Quarter: 2013Q3

REPORT INFORMATION
  Report Type: Report from Study
  Country: JP (occurrence: JP)
  Receive Date: 20130617
  Receipt Date: 20130702
  Transmission Date: 20140515
  Serious: Yes (Other)
  Sender: FDA-Public Use
  Company Number: JP-BAXTER-2013BAX022269

PATIENT
  Age: 71 Year
  Sex: Male
  Weight: 58 kg

DRUGS (13)
  1. CYCLOPHOSPHAMIDE FOR INJECTION, USP [Suspect]
     Indication: DIFFUSE LARGE B-CELL LYMPHOMA
     Route: 042
     Dates: start: 20120314
  2. CYCLOPHOSPHAMIDE FOR INJECTION, USP [Suspect]
     Route: 042
     Dates: start: 20120626
  3. RITUXIMAB [Suspect]
     Indication: DIFFUSE LARGE B-CELL LYMPHOMA
     Route: 042
     Dates: start: 20120314
  4. RITUXIMAB [Suspect]
     Route: 042
     Dates: start: 20120807
  5. DOXORUBICIN [Suspect]
     Indication: DIFFUSE LARGE B-CELL LYMPHOMA
     Route: 042
     Dates: start: 20120314
  6. DOXORUBICIN [Suspect]
     Route: 042
     Dates: start: 20120626
  7. VINCRISTINE [Suspect]
     Indication: DIFFUSE LARGE B-CELL LYMPHOMA
     Route: 040
     Dates: start: 20120314
  8. VINCRISTINE [Suspect]
     Route: 040
     Dates: start: 20120626
  9. PREDNISOLONE [Suspect]
     Indication: DIFFUSE LARGE B-CELL LYMPHOMA
     Route: 065
     Dates: start: 20120314
  10. PREDNISOLONE [Suspect]
     Route: 065
     Dates: start: 20120630
  11. BETAMETHASONE [Concomitant]
     Indication: PSORIASIS
     Route: 065
  12. CALCIPOTRIOL [Concomitant]
     Indication: PSORIASIS
     Route: 065
  13. ENTECAVIR [Concomitant]
     Indication: PRODUCT USED FOR UNKNOWN INDICATION
     Route: 065
     Dates: start: 20120524

REACTIONS (1)
  - Colorectal cancer [Recovered/Resolved]
